FAERS Safety Report 18434773 (Version 1)
Quarter: 2020Q4

REPORT INFORMATION
  Report Type: Spontaneous
  Country: US (occurrence: US)
  Receive Date: 20201028
  Receipt Date: 20201028
  Transmission Date: 20210114
  Serious: Yes (Hospitalization)
  Sender: FDA-Public Use
  Company Number: US-HETERO-HET2020US01143

PATIENT
  Age: 82 Year
  Sex: Female
  Weight: 70 kg

DRUGS (4)
  1. DULOXETINE. [Suspect]
     Active Substance: DULOXETINE
     Dosage: UNK
     Route: 048
  2. DILTIAZEM. [Concomitant]
     Active Substance: DILTIAZEM
     Indication: HYPERTENSION
     Dosage: 120 MG 15 TABLETS OF 120MG DILTIAZEM
     Route: 048
  3. ATORVASTATIN [Concomitant]
     Active Substance: ATORVASTATIN
     Indication: PRODUCT USED FOR UNKNOWN INDICATION
     Dosage: 40 MG
     Route: 048
  4. DULOXETINE. [Suspect]
     Active Substance: DULOXETINE
     Indication: DEPRESSION
     Dosage: 30 MG CAPSULES
     Route: 048

REACTIONS (2)
  - Overdose [Unknown]
  - Hyponatraemia [Recovered/Resolved]
